FAERS Safety Report 15282910 (Version 1)
Quarter: 2018Q4

REPORT INFORMATION
  Report Type: Spontaneous
  Country: FR (occurrence: FR)
  Receive Date: 20180816
  Receipt Date: 20180816
  Transmission Date: 20190204
  Serious: Yes (Hospitalization)
  Sender: FDA-Public Use
  Company Number: FR-TEVA-2018-FR-940874

PATIENT
  Age: 13 Year
  Sex: Female
  Weight: 41.2 kg

DRUGS (5)
  1. DOMPERIDONE [Suspect]
     Active Substance: DOMPERIDONE
     Route: 048
     Dates: start: 20180414, end: 20180414
  2. ZOLPIDEM [Suspect]
     Active Substance: ZOLPIDEM\ZOLPIDEM TARTRATE
     Route: 048
     Dates: start: 20180414, end: 20180414
  3. DOLIPRANE [Suspect]
     Active Substance: ACETAMINOPHEN
     Route: 048
     Dates: start: 20180414, end: 20180414
  4. DROSPIRENONE AND ETHINYL ESTRADIOL [Suspect]
     Active Substance: DROSPIRENONE\ETHINYL ESTRADIOL
     Route: 048
     Dates: start: 20180414, end: 20180414
  5. SPIFEN 200 MG, COMPRIM? [Suspect]
     Active Substance: IBUPROFEN
     Route: 048
     Dates: start: 20180414, end: 20180414

REACTIONS (2)
  - Vomiting [Recovered/Resolved]
  - Coma [Recovered/Resolved]

NARRATIVE: CASE EVENT DATE: 20180414
